FAERS Safety Report 22115950 (Version 3)
Quarter: 2023Q2

REPORT INFORMATION
  Report Type: Spontaneous
  Country: US (occurrence: US)
  Receive Date: 20230320
  Receipt Date: 20230530
  Transmission Date: 20230721
  Serious: No
  Sender: FDA-Public Use
  Company Number: US-SUNOVION-2023SUN000409AA

PATIENT
  Sex: Male

DRUGS (2)
  1. APTIOM [Suspect]
     Active Substance: ESLICARBAZEPINE ACETATE
     Indication: Product used for unknown indication
     Dosage: UNK
     Route: 048
  2. APTIOM [Suspect]
     Active Substance: ESLICARBAZEPINE ACETATE
     Dosage: 800 MG (2 TABS OF 400MG)
     Route: 048

REACTIONS (2)
  - Rash [Recovering/Resolving]
  - Memory impairment [Not Recovered/Not Resolved]
